FAERS Safety Report 4562983-9 (Version None)
Quarter: 2005Q1

REPORT INFORMATION
  Report Type: 
  Country: None (occurrence: None)
  Receive Date: 20050121
  Receipt Date: 20050112
  Transmission Date: 20050727
  Serious: Yes (Other)
  Sender: FDA-Public Use
  Company Number: 2004071699

PATIENT
  Age: 66 Year
  Sex: Male
  Weight: 97 kg

DRUGS (8)
  1. CARDURA XL [Suspect]
     Indication: HYPERTENSION
     Dosage: 4 MG (4 MG, 1 IN 1 D), ORAL
     Route: 048
     Dates: start: 20040827, end: 20040905
  2. ALFACALCIDOL (ALFACALCIDOL) [Concomitant]
  3. ASPIRIN [Concomitant]
  4. OMEPRAZOLE [Concomitant]
  5. CALCIUM CARBONATE (CALCIUM CARBONATE) [Concomitant]
  6. ATORVASTATIN (ATORVASTATIN) [Concomitant]
  7. FELODIPINE [Concomitant]
  8. LISINOPRIL [Concomitant]

REACTIONS (3)
  - HAEMATURIA [None]
  - PROSTATIC HAEMORRHAGE [None]
  - SUPRAPUBIC PAIN [None]
